FAERS Safety Report 21413084 (Version 1)
Quarter: 2022Q4

REPORT INFORMATION
  Report Type: Spontaneous
  Country: DE (occurrence: DE)
  Receive Date: 20221005
  Receipt Date: 20221005
  Transmission Date: 20230113
  Serious: Yes (Hospitalization, Other)
  Sender: FDA-Public Use
  Company Number: DE-ADRED-08246-01

PATIENT
  Age: 70 Year
  Sex: Male
  Weight: 125 kg

DRUGS (14)
  1. XARELTO [Suspect]
     Active Substance: RIVAROXABAN
     Indication: Product used for unknown indication
     Dosage: 20 MG, PAUSE
     Route: 048
  2. CHOLECALCIFEROL [Concomitant]
     Active Substance: CHOLECALCIFEROL
     Dosage: 20000 IU, OW
     Route: 058
  3. TINZAPARIN [Concomitant]
     Active Substance: TINZAPARIN
     Dosage: 10000 IU, BID
     Route: 058
  4. METFORMIN [Concomitant]
     Active Substance: METFORMIN HYDROCHLORIDE
     Dosage: 1000 MG, BID
  5. DAPAGLIFLOZIN [Concomitant]
     Active Substance: DAPAGLIFLOZIN
     Dosage: 10 MG, OM
  6. RAMIPRIL [Concomitant]
     Active Substance: RAMIPRIL
     Dosage: 10 MG, OM
  7. PANTOPRAZOLE [Concomitant]
     Active Substance: PANTOPRAZOLE
     Dosage: 20 MG, OM
  8. METAMIZOL [Concomitant]
     Active Substance: METAMIZOLE SODIUM
     Dosage: 1000 MG, QID
  9. DIGITOXIN [Concomitant]
     Active Substance: DIGITOXIN
     Dosage: 0.07 MG, OM
  10. AMLODIPINE [Concomitant]
     Active Substance: AMLODIPINE BESYLATE
     Dosage: 5 MG, QD
  11. SPIRONOLACTONE [Concomitant]
     Active Substance: SPIRONOLACTONE
     Dosage: 25 MG, OM
  12. TORSEMIDE [Concomitant]
     Active Substance: TORSEMIDE
     Dosage: 10 MG, OM
  13. TAMSULOSIN [Concomitant]
     Active Substance: TAMSULOSIN
     Dosage: 0.4 MG, OM
  14. METOPROLOL [Concomitant]
     Active Substance: METOPROLOL
     Dosage: 95 MG, OM

REACTIONS (12)
  - Hypotension [Unknown]
  - Systemic infection [Unknown]
  - Muscular weakness [Unknown]
  - Haemothorax [Unknown]
  - General physical health deterioration [Unknown]
  - Dizziness [Unknown]
  - Anaemia [Unknown]
  - Internal haemorrhage [Unknown]
  - Condition aggravated [Unknown]
  - Renal impairment [Unknown]
  - Cold sweat [Unknown]
  - Chest pain [Unknown]
